FAERS Safety Report 12714622 (Version 1)
Quarter: 2016Q3

REPORT INFORMATION
  Report Type: Spontaneous
  Country: US (occurrence: US)
  Receive Date: 20160905
  Receipt Date: 20160905
  Transmission Date: 20161109
  Serious: No
  Sender: FDA-Public Use
  Company Number: US-009507513-1609USA000322

PATIENT
  Sex: Female
  Weight: 86.17 kg

DRUGS (1)
  1. NEXPLANON [Suspect]
     Active Substance: ETONOGESTREL
     Indication: CONTRACEPTION
     Dosage: ONE ROD ONCE PER THREE YEARS
     Route: 059
     Dates: start: 20150626, end: 2016

REACTIONS (6)
  - Movement disorder [Unknown]
  - Scab [Unknown]
  - Device expulsion [Recovered/Resolved]
  - Implant site erythema [Unknown]
  - Implant site irritation [Unknown]
  - Pain in extremity [Unknown]

NARRATIVE: CASE EVENT DATE: 2015
